FAERS Safety Report 22593743 (Version 1)
Quarter: 2023Q2

REPORT INFORMATION
  Report Type: Spontaneous
  Country: HU (occurrence: HU)
  Receive Date: 20230613
  Receipt Date: 20230613
  Transmission Date: 20230722
  Serious: Yes (Death, Other)
  Sender: FDA-Public Use
  Company Number: HU-EMA-DD-20230512-7185823-094947

PATIENT
  Age: 3 Year
  Sex: Female

DRUGS (2)
  1. METHOTREXATE [Suspect]
     Active Substance: METHOTREXATE
     Indication: Metastases to meninges
  2. RITUXIMAB [Suspect]
     Active Substance: RITUXIMAB
     Indication: Acute lymphocytic leukaemia
     Dosage: UNK

REACTIONS (7)
  - Muscle contracture [Unknown]
  - Optic atrophy [Unknown]
  - Muscle atrophy [Unknown]
  - Visual impairment [Unknown]
  - Joint contracture [Unknown]
  - Delayed light adaptation [Unknown]
  - Multiple organ dysfunction syndrome [Fatal]
